FAERS Safety Report 5842360-0 (Version None)
Quarter: 2008Q3

REPORT INFORMATION
  Report Type: 
  Country: None (occurrence: None)
  Receive Date: 20080812
  Receipt Date: 20080728
  Transmission Date: 20090109
  Serious: No
  Sender: FDA-Public Use
  Company Number: US-BOEHRINGER INGELHEIM GMBH, GERMANY-2008-BP-10596BP

PATIENT
  Age: 79 Year
  Sex: Female

DRUGS (3)
  1. SPIRIVA [Suspect]
     Indication: CHRONIC OBSTRUCTIVE PULMONARY DISEASE
     Route: 055
     Dates: start: 20060401
  2. FUROSEMIDE [Concomitant]
     Indication: OEDEMA
     Route: 048
     Dates: start: 20050101
  3. MAXAIR [Concomitant]
     Indication: DYSPNOEA
     Route: 055
     Dates: start: 20040101

REACTIONS (3)
  - ABDOMINAL PAIN UPPER [None]
  - CANDIDIASIS [None]
  - TONGUE DISCOLOURATION [None]
